FAERS Safety Report 8967780 (Version 1)
Quarter: 2012Q4

REPORT INFORMATION
  Report Type: Spontaneous
  Country: DE (occurrence: None)
  Receive Date: 20121207
  Receipt Date: 20121207
  Transmission Date: 20130627
  Serious: Yes (Death)
  Sender: FDA-Public Use
  Company Number: TPA2012A09475

PATIENT
  Age: 82 Year
  Sex: Male

DRUGS (6)
  1. ADENURIC [Suspect]
     Indication: GOUTY ARTHROPATHY
     Route: 048
     Dates: start: 20120927, end: 20121027
  2. BISOPROLOL LA PHARMA(BISOPROLOL FUMARATE) [Concomitant]
  3. NEPHROTRANE (SODIUM BICARBONATE) [Concomitant]
  4. RAMILICH (RAMIPRIL) [Concomitant]
  5. TORASEMIDE [Concomitant]
  6. NOVALGIN TROPFEN (METAMIZOLE SODIUM) [Concomitant]

REACTIONS (1)
  - Death [None]
